FAERS Safety Report 17750498 (Version 2)
Quarter: 2020Q2

REPORT INFORMATION
  Report Type: Spontaneous
  Country: IL (occurrence: IL)
  Receive Date: 20200506
  Receipt Date: 20200516
  Transmission Date: 20200714
  Serious: Yes (Other)
  Sender: FDA-Public Use
  Company Number: IL-ASTRAZENECA-2020SE59872

PATIENT
  Age: 69 Year
  Sex: Female
  Weight: 98 kg

DRUGS (6)
  1. CALCIUM 600 + VIT D200 [Concomitant]
  2. LIPITOR [Concomitant]
     Active Substance: ATORVASTATIN CALCIUM
  3. VASODIP [Concomitant]
     Active Substance: LERCANIDIPINE HYDROCHLORIDE
  4. TAGRISSO [Suspect]
     Active Substance: OSIMERTINIB
     Indication: NON-SMALL CELL LUNG CANCER STAGE IV
     Route: 048
     Dates: start: 20190805, end: 20200430
  5. OMEPRADEX [Concomitant]
     Active Substance: OMEPRAZOLE
  6. TAGRISSO [Suspect]
     Active Substance: OSIMERTINIB
     Indication: LUNG CANCER METASTATIC
     Route: 048
     Dates: start: 20190805, end: 20200430

REACTIONS (2)
  - Metastases to bone marrow [Unknown]
  - Pancytopenia [Not Recovered/Not Resolved]
